FAERS Safety Report 9818723 (Version 1)
Quarter: 2014Q1

REPORT INFORMATION
  Report Type: Spontaneous
  Country: US (occurrence: US)
  Receive Date: 20140115
  Receipt Date: 20140115
  Transmission Date: 20141002
  Serious: Yes (Other)
  Sender: FDA-Public Use
  Company Number: US-BAXTER-2014BAX001760

PATIENT
  Age: 31 Year
  Sex: Male

DRUGS (3)
  1. SEVOFLURANE, USP [Suspect]
     Indication: GENERAL ANAESTHESIA
     Route: 007
  2. MIDAZOLAM [Suspect]
     Indication: GENERAL ANAESTHESIA
     Route: 042
  3. FENTANYL [Suspect]
     Indication: GENERAL ANAESTHESIA
     Route: 042

REACTIONS (1)
  - Pulmonary alveolar haemorrhage [Recovered/Resolved]
